FAERS Safety Report 7119744-6 (Version None)
Quarter: 2010Q4

REPORT INFORMATION
  Report Type: 
  Country: None (occurrence: None)
  Receive Date: 20101123
  Receipt Date: 20100803
  Transmission Date: 20110411
  Serious: No
  Sender: FDA-Public Use
  Company Number: US-BRISTOL-MYERS SQUIBB COMPANY-15221492

PATIENT
  Age: 86 Year
  Sex: Female

DRUGS (3)
  1. ONGLYZA [Suspect]
  2. METFORMIN HCL [Concomitant]
  3. GLIPIZIDE [Concomitant]

REACTIONS (2)
  - OEDEMA MOUTH [None]
  - URINARY TRACT INFECTION [None]
